FAERS Safety Report 10902562 (Version 1)
Quarter: 2015Q1

REPORT INFORMATION
  Report Type: Spontaneous
  Country: CH (occurrence: CH)
  Receive Date: 20150310
  Receipt Date: 20150310
  Transmission Date: 20150721
  Serious: Yes (Other)
  Sender: FDA-Public Use
  Company Number: CH-ACTAVIS-2015-04370

PATIENT
  Age: 23 Year
  Sex: Female

DRUGS (2)
  1. CITALOPRAM [Suspect]
     Active Substance: CITALOPRAM HYDROBROMIDE
     Indication: PRODUCT USED FOR UNKNOWN INDICATION
     Dosage: 10 MG, DAILY
     Route: 048
     Dates: start: 2013
  2. XANAX [Suspect]
     Active Substance: ALPRAZOLAM
     Indication: PRODUCT USED FOR UNKNOWN INDICATION
     Dosage: 10 MG, DAILY
     Route: 048
     Dates: start: 2013

REACTIONS (5)
  - Retained placenta or membranes [Recovered/Resolved]
  - Bradycardia foetal [Recovered/Resolved]
  - Uterine atony [Recovered/Resolved]
  - Exposure during pregnancy [Recovered/Resolved]
  - Retroplacental haematoma [Recovered/Resolved]

NARRATIVE: CASE EVENT DATE: 20131212
